FAERS Safety Report 11795863 (Version 1)
Quarter: 2015Q4

REPORT INFORMATION
  Report Type: Spontaneous
  Country: DE (occurrence: DE)
  Receive Date: 20151203
  Receipt Date: 20151203
  Transmission Date: 20160305
  Serious: Yes (Other)
  Sender: FDA-Public Use
  Company Number: DE-ROCHE-1670167

PATIENT
  Sex: Male

DRUGS (4)
  1. MYCOPHENOLATE MOFETIL. [Suspect]
     Active Substance: MYCOPHENOLATE MOFETIL
     Indication: LIVER TRANSPLANT
     Route: 065
  2. TACROLIMUS. [Suspect]
     Active Substance: TACROLIMUS
     Indication: LIVER TRANSPLANT
     Route: 065
  3. VINORELBINE [Concomitant]
     Active Substance: VINORELBINE\VINORELBINE TARTRATE
  4. CARBOPLATIN. [Concomitant]
     Active Substance: CARBOPLATIN

REACTIONS (5)
  - Hypoventilation [Unknown]
  - Pulmonary embolism [Unknown]
  - Pleural effusion [Unknown]
  - Lung consolidation [Unknown]
  - Non-small cell lung cancer [Unknown]

NARRATIVE: CASE EVENT DATE: 2011
